FAERS Safety Report 21203735 (Version 1)
Quarter: 2022Q3

REPORT INFORMATION
  Report Type: Spontaneous
  Country: CN (occurrence: CN)
  Receive Date: 20220811
  Receipt Date: 20220811
  Transmission Date: 20221027
  Serious: Yes (Other)
  Sender: FDA-Public Use
  Company Number: CN-009507513-2208CHN002955

PATIENT
  Age: 58 Year
  Sex: Male

DRUGS (3)
  1. CILASTATIN SODIUM\IMIPENEM [Suspect]
     Active Substance: CILASTATIN SODIUM\IMIPENEM
     Indication: Infection
     Dosage: 1 G, TID
     Route: 041
     Dates: start: 20220513, end: 20220525
  2. CEFOPERAZONE SODIUM\SULBACTAM SODIUM [Suspect]
     Active Substance: CEFOPERAZONE SODIUM\SULBACTAM SODIUM
     Indication: Anti-infective therapy
     Dosage: 3 G, TID
     Route: 041
     Dates: start: 20220501, end: 20220513
  3. ORNIDAZOLE [Suspect]
     Active Substance: ORNIDAZOLE
     Indication: Anti-infective therapy
     Dosage: 100 ML, BID
     Route: 041
     Dates: start: 20220501, end: 20220513

REACTIONS (1)
  - Gastrointestinal fungal infection [Recovering/Resolving]

NARRATIVE: CASE EVENT DATE: 20220514
